FAERS Safety Report 15248169 (Version 1)
Quarter: 2018Q3

REPORT INFORMATION
  Report Type: Spontaneous
  Country: US (occurrence: US)
  Receive Date: 20180714
  Receipt Date: 20180714
  Transmission Date: 20181010
  Serious: Yes (Hospitalization)
  Sender: FDA-Public Use
  Company Number: None

PATIENT
  Age: 58 Year
  Sex: Female
  Weight: 52.2 kg

DRUGS (4)
  1. XELODA [Suspect]
     Active Substance: CAPECITABINE
     Dates: end: 20180706
  2. LEUCOVORIN CALCIUM. [Suspect]
     Active Substance: LEUCOVORIN CALCIUM
     Dates: end: 20180508
  3. ELOXATIN [Suspect]
     Active Substance: OXALIPLATIN
     Dates: end: 20180508
  4. 5?FLUOROURACIL (5?FU) (19893) [Suspect]
     Active Substance: FLUOROURACIL
     Dates: end: 20180510

REACTIONS (2)
  - Complication associated with device [None]
  - Superior vena cava syndrome [None]

NARRATIVE: CASE EVENT DATE: 20180709
